FAERS Safety Report 9161893 (Version 2)
Quarter: 2013Q1

REPORT INFORMATION
  Report Type: Spontaneous
  Country: US (occurrence: None)
  Receive Date: 20130220
  Receipt Date: 20130228
  Transmission Date: 20140127
  Serious: Yes (Hospitalization, Disabling)
  Sender: FDA-Public Use
  Company Number: AUR-APL-2013-01439

PATIENT
  Age: 32 Year
  Sex: Female

DRUGS (3)
  1. LAMIVUDINE\ZIDOVUDINE [Suspect]
     Indication: ANTIRETROVIRAL THERAPY
  2. ATAZANAVIR [Suspect]
     Indication: ANTIRETROVIRAL THERAPY
  3. RITONAVIR (RITONAVIR) [Suspect]
     Indication: ANTIRETROVIRAL THERAPY

REACTIONS (6)
  - Pain in extremity [None]
  - Back pain [None]
  - Arthralgia [None]
  - Epidural lipomatosis [None]
  - Premature rupture of membranes [None]
  - Exposure during pregnancy [None]
